FAERS Safety Report 13916866 (Version 1)
Quarter: 2017Q3

REPORT INFORMATION
  Report Type: Spontaneous
  Country: GB (occurrence: GB)
  Receive Date: 20170829
  Receipt Date: 20170829
  Transmission Date: 20171127
  Serious: Yes (Other)
  Sender: FDA-Public Use
  Company Number: GB-BIO PRODUCTS LABORATORY LTD-2025238

PATIENT
  Sex: Male

DRUGS (1)
  1. GENERIC SCIG AND IVIG [Suspect]
     Active Substance: HUMAN IMMUNOGLOBULIN G

REACTIONS (7)
  - Chest pain [Unknown]
  - Infusion site swelling [Recovered/Resolved]
  - Myalgia [Unknown]
  - Infusion site pain [Recovered/Resolved]
  - Erythema [Unknown]
  - Burning sensation [Unknown]
  - Infusion site erythema [Recovered/Resolved]
